FAERS Safety Report 5009341-0 (Version None)
Quarter: 2006Q2

REPORT INFORMATION
  Report Type: 
  Country: None (occurrence: None)
  Receive Date: 20060524
  Receipt Date: 20060517
  Transmission Date: 20061013
  Serious: Yes (Hospitalization)
  Sender: FDA-Public Use
  Company Number: FR-BRISTOL-MYERS SQUIBB COMPANY-13382114

PATIENT
  Age: 99 Year
  Sex: Female

DRUGS (16)
  1. APROVEL FILM-COATED TABS 75 MG [Suspect]
     Route: 048
     Dates: start: 20060128
  2. BURINEX [Suspect]
     Route: 048
  3. CORVASAL [Suspect]
     Route: 048
  4. VASTAREL [Concomitant]
  5. DIFFU-K [Concomitant]
  6. DEROXAT [Concomitant]
     Route: 048
  7. DOLIPRANE [Concomitant]
  8. LEXOMIL [Concomitant]
     Dosage: 1.2 IN THE EVENING
  9. EXOMUC [Concomitant]
     Dosage: 1 IN THE MORNING
  10. SYMBICORT [Concomitant]
  11. VENTOLIN [Concomitant]
     Dosage: 1 TO 2 PUFFS AS NEEDED
     Route: 055
  12. LASILIX [Concomitant]
     Dosage: 40 MG 1 VIAL IN AN EMERGENCY AS NEEDED
     Route: 042
  13. BIAFINE [Concomitant]
     Route: 061
  14. OFLOCET [Concomitant]
     Dates: start: 20060328
  15. ACETYLCYSTEINE [Concomitant]
     Dates: start: 20060328
  16. RIFAMYCIN SODIUM [Concomitant]
     Route: 047
     Dates: start: 20060328

REACTIONS (3)
  - HEAD INJURY [None]
  - LOSS OF CONSCIOUSNESS [None]
  - ORTHOSTATIC HYPOTENSION [None]
